FAERS Safety Report 10215907 (Version 1)
Quarter: 2014Q2

REPORT INFORMATION
  Report Type: Spontaneous
  Country: US (occurrence: None)
  Receive Date: 20140602
  Receipt Date: 20140602
  Transmission Date: 20141212
  Serious: Yes (Hospitalization)
  Sender: FDA-Public Use
  Company Number: HYDX20140003

PATIENT
  Age: 47 Year
  Sex: Female

DRUGS (2)
  1. HYDROXYZINE HYDROCHLORIDE [Suspect]
     Indication: PRODUCT USED FOR UNKNOWN INDICATION
     Route: 048
  2. HYDROXYZINE HYDROCHLORIDE [Suspect]
     Indication: DRUG HYPERSENSITIVITY
     Dosage: 6MG, 1ML, THEN TITRATE 2ML AFTER 20 MINUTES, ORAL
     Route: 048

REACTIONS (8)
  - Dyspnoea [None]
  - Pruritus generalised [None]
  - Eczema [None]
  - Eosinophilia [None]
  - Oedema mucosal [None]
  - Cough [None]
  - Blood pressure increased [None]
  - Anaphylactic reaction [None]
